FAERS Safety Report 9303365 (Version 1)
Quarter: 2013Q2

REPORT INFORMATION
  Report Type: Spontaneous
  Country: FR (occurrence: None)
  Receive Date: 20130516
  Receipt Date: 20130516
  Transmission Date: 20140414
  Serious: Yes (Other)
  Sender: FDA-Public Use
  Company Number: AXC-2013-000202

PATIENT
  Age: 51 Year
  Sex: Female

DRUGS (2)
  1. PYLERA [Suspect]
     Indication: HELICOBACTER INFECTION
     Route: 048
     Dates: start: 201304, end: 201304
  2. OMEPRAZOLE /00661202 (OMEOPRAZOLE SODIUM) [Concomitant]

REACTIONS (2)
  - Hypoaesthesia [None]
  - Chest pain [None]
